FAERS Safety Report 4777314-9 (Version None)
Quarter: 2005Q3

REPORT INFORMATION
  Report Type: 
  Country: None (occurrence: None)
  Receive Date: 20050922
  Receipt Date: 20050922
  Transmission Date: 20060218
  Serious: Yes (Other)
  Sender: FDA-Public Use
  Company Number: None

PATIENT
  Sex: Male

DRUGS (7)
  1. RISPERIDONE [Suspect]
     Indication: SCHIZOPHRENIA
     Dosage: 50 MG   Q 2 WEEKS    IM
     Route: 030
     Dates: start: 20040816, end: 20050216
  2. RISPERIDONE [Suspect]
     Indication: SCHIZOPHRENIA
     Dosage: 3 MG    HS    PO
     Route: 048
  3. APAP TAB [Concomitant]
  4. BENZTROPINE [Concomitant]
  5. DEPAKOTE [Concomitant]
  6. LORAZEPAM [Concomitant]
  7. ALUMINUM HYDROXIDE AND MAGNESIUM TRISILICATE [Concomitant]

REACTIONS (2)
  - BLOOD PROLACTIN INCREASED [None]
  - BREAST TENDERNESS [None]
